FAERS Safety Report 5590134-0 (Version None)
Quarter: 2008Q1

REPORT INFORMATION
  Report Type: 
  Country: None (occurrence: None)
  Receive Date: 20080114
  Receipt Date: 20070222
  Transmission Date: 20080703
  Serious: No
  Sender: FDA-Public Use
  Company Number: US-ABBOTT-07P-163-0360185-00

PATIENT
  Sex: Male
  Weight: 24.97 kg

DRUGS (2)
  1. OMNICEF [Suspect]
     Indication: SINUSITIS
     Dosage: 250 CC/5 ML- 3/4 TEASPOON
     Route: 048
     Dates: start: 20070219, end: 20070222
  2. PEDIACARE [Concomitant]
     Indication: DRUG USE FOR UNKNOWN INDICATION
     Route: 048

REACTIONS (2)
  - RASH MACULAR [None]
  - RASH PRURITIC [None]
